FAERS Safety Report 7744636-9 (Version None)
Quarter: 2011Q3

REPORT INFORMATION
  Report Type: 
  Country: None (occurrence: None)
  Receive Date: 20110912
  Receipt Date: 20110912
  Transmission Date: 20111222
  Serious: Yes (Other)
  Sender: FDA-Public Use
  Company Number: NZ-ABBOTT-11P-118-0850634-00

PATIENT
  Age: 61 Year
  Sex: Male

DRUGS (2)
  1. SULINDAC [Concomitant]
     Indication: PRODUCT USED FOR UNKNOWN INDICATION
  2. HUMIRA [Suspect]
     Indication: PSORIASIS
     Route: 058
     Dates: start: 20101018

REACTIONS (3)
  - COMPARTMENT SYNDROME [None]
  - PAIN IN EXTREMITY [None]
  - KNEE ARTHROPLASTY [None]
